FAERS Safety Report 19811531 (Version 3)
Quarter: 2021Q3

REPORT INFORMATION
  Report Type: Spontaneous
  Country: DE (occurrence: DE)
  Receive Date: 20210909
  Receipt Date: 20210930
  Transmission Date: 20211014
  Serious: Yes (Hospitalization, Other)
  Sender: FDA-Public Use
  Company Number: DE-GLAXOSMITHKLINE-DECH2021EME061253

PATIENT
  Sex: Male

DRUGS (7)
  1. PANTOPRAZOLE TAKEDA [PANTOPRAZOLE SODIUM] [Suspect]
     Active Substance: PANTOPRAZOLE SODIUM
     Indication: SUICIDE ATTEMPT
     Dosage: UNK
     Dates: start: 20210814, end: 20210814
  2. THEOPHYLLINE [Suspect]
     Active Substance: THEOPHYLLINE ANHYDROUS
     Indication: SUICIDE ATTEMPT
     Dosage: UNK
     Dates: start: 20210814, end: 20210814
  3. EBASTINE [Suspect]
     Active Substance: EBASTINE
     Indication: SUICIDE ATTEMPT
     Dosage: UNK
     Route: 065
     Dates: start: 20210814, end: 20210814
  4. SALBUTAMOL [Suspect]
     Active Substance: ALBUTEROL
     Indication: SUICIDE ATTEMPT
     Dosage: UNK
     Dates: start: 20210814, end: 20210814
  5. IBUPROFEN. [Suspect]
     Active Substance: IBUPROFEN
     Indication: SUICIDE ATTEMPT
     Dosage: 8000 MG, QD
     Dates: start: 20210814, end: 20210814
  6. FOSTER [Suspect]
     Active Substance: BECLOMETHASONE\FORMOTEROL
     Indication: SUICIDE ATTEMPT
     Dosage: UNK, PRESSURISED INHALATION SOLUTION
     Route: 055
     Dates: start: 20210814, end: 20210814
  7. FOSTER (PIROXICAM) [Suspect]
     Active Substance: PIROXICAM
     Indication: SUICIDE ATTEMPT
     Dosage: UNK
     Dates: start: 20210814, end: 20210814

REACTIONS (8)
  - Chills [Recovering/Resolving]
  - Suicide attempt [Unknown]
  - Electrocardiogram ST segment elevation [Recovering/Resolving]
  - Blood glucose increased [Recovering/Resolving]
  - Hyperglycaemia [Recovering/Resolving]
  - Blood pressure decreased [Recovering/Resolving]
  - Drug abuse [Recovered/Resolved]
  - Somnolence [Recovering/Resolving]

NARRATIVE: CASE EVENT DATE: 20210814
